FAERS Safety Report 5048509-4 (Version None)
Quarter: 2006Q3

REPORT INFORMATION
  Report Type: 
  Country: None (occurrence: None)
  Receive Date: 20060705
  Receipt Date: 20060612
  Transmission Date: 20061208
  Serious: No
  Sender: FDA-Public Use
  Company Number: AT200606003023

PATIENT
  Age: 16 Year
  Sex: Female

DRUGS (9)
  1. ZYPREXA [Suspect]
     Indication: ANOREXIA NERVOSA
     Dosage: SEE IMAGE
     Route: 048
     Dates: start: 20040517, end: 20040618
  2. ZYPREXA [Suspect]
     Indication: ANOREXIA NERVOSA
     Dosage: SEE IMAGE
     Route: 048
     Dates: start: 20040619, end: 20040620
  3. ZYPREXA [Suspect]
     Indication: ANOREXIA NERVOSA
     Dosage: SEE IMAGE
     Route: 048
     Dates: start: 20040621, end: 20040802
  4. ZYPREXA [Suspect]
     Indication: ANOREXIA NERVOSA
     Dosage: SEE IMAGE
     Route: 048
     Dates: start: 20040803
  5. TRAZODONE HCL [Concomitant]
  6. CLONAZEPAM [Concomitant]
  7. BENEFIBER (GUAR GUM) [Concomitant]
  8. CAL-D-VITA (CALCIUM CARBONATE, COLECALCIFEROL) [Concomitant]
  9. MAXI-KALZ (CALCIUM CITRATE) [Concomitant]

REACTIONS (1)
  - LEUKOPENIA [None]
